FAERS Safety Report 7651527 (Version 2)
Quarter: 2013Q3

REPORT INFORMATION
  Report Type: Spontaneous
  Country: US (occurrence: US)
  Receive Date: 20101101
  Receipt Date: 20130710
  Transmission Date: 20140515
  Serious: No
  Sender: FDA-Public Use
  Company Number: US-BIOGENIDEC-2010BI036888

PATIENT
  Sex: Female

DRUGS (1)
  1. AVONEX [Suspect]
     Indication: MULTIPLE SCLEROSIS
     Route: 030
     Dates: start: 200309

REACTIONS (5)
  - Sciatica [Unknown]
  - Fall [Recovered/Resolved]
  - Balance disorder [Recovered/Resolved]
  - Gait disturbance [Unknown]
  - Influenza like illness [Recovered/Resolved]
